FAERS Safety Report 9602733 (Version 6)
Quarter: 2016Q2

REPORT INFORMATION
  Report Type: Spontaneous
  Country: FR (occurrence: FR)
  Receive Date: 20131007
  Receipt Date: 20160412
  Transmission Date: 20160815
  Serious: Yes (Hospitalization)
  Sender: FDA-Public Use
  Company Number: FR-GE HEALTHCARE MEDICAL DIAGNOSTICS-OMPQ-PR-1309S-1186

PATIENT
  Age: 57 Year
  Sex: Male

DRUGS (6)
  1. TAZOCILLINE [Suspect]
     Active Substance: PIPERACILLIN SODIUM\TAZOBACTAM SODIUM
     Route: 042
     Dates: start: 20130615, end: 20130707
  2. CEFOTAXIME [Suspect]
     Active Substance: CEFOTAXIME SODIUM
     Dates: start: 20130611, end: 20130624
  3. OFLOCET [Suspect]
     Active Substance: OFLOXACIN
     Route: 048
     Dates: start: 20130611, end: 20130615
  4. OMNIPAQUE [Suspect]
     Active Substance: IOHEXOL
     Indication: PRODUCT USED FOR UNKNOWN INDICATION
     Dosage: DOSE NOT REPORTED
     Route: 042
     Dates: start: 20130609, end: 20130609
  5. EUPANTOL [Suspect]
     Active Substance: PANTOPRAZOLE SODIUM
     Dates: start: 20130608, end: 20130618
  6. OMNIPAQUE [Suspect]
     Active Substance: IOHEXOL
     Indication: DIAGNOSTIC PROCEDURE

REACTIONS (1)
  - Drug reaction with eosinophilia and systemic symptoms [Recovered/Resolved]

NARRATIVE: CASE EVENT DATE: 20130701
